FAERS Safety Report 5159919-9 (Version None)
Quarter: 2006Q4

REPORT INFORMATION
  Report Type: 
  Country: None (occurrence: None)
  Receive Date: 20061129
  Receipt Date: 20060906
  Transmission Date: 20070319
  Serious: Yes (Other)
  Sender: FDA-Public Use
  Company Number: 2006SE04821

PATIENT
  Age: 66 Year
  Sex: Female
  Weight: 88 kg

DRUGS (4)
  1. ATACAND HCT [Suspect]
     Indication: HYPERTENSION
     Route: 048
     Dates: end: 20060905
  2. NEXIUM [Suspect]
     Indication: HIATUS HERNIA
     Route: 048
  3. NORVASC [Concomitant]
     Indication: HYPERTENSION
     Route: 048
  4. BEVISPAS [Concomitant]
     Route: 048

REACTIONS (2)
  - PANNICULITIS LOBULAR [None]
  - SLEEP DISORDER [None]
